FAERS Safety Report 16155298 (Version 4)
Quarter: 2020Q4

REPORT INFORMATION
  Report Type: Spontaneous
  Country: US (occurrence: US)
  Receive Date: 20190403
  Receipt Date: 20201106
  Transmission Date: 20210113
  Serious: No
  Sender: FDA-Public Use
  Company Number: US-TAKEDA-2019TUS017708

PATIENT
  Age: 68 Year
  Sex: Female

DRUGS (13)
  1. CETRIZINE [Concomitant]
     Active Substance: CETIRIZINE HYDROCHLORIDE
     Dosage: UNK
     Route: 065
  2. NINLARO [Suspect]
     Active Substance: IXAZOMIB CITRATE
     Indication: PLASMA CELL MYELOMA
     Dosage: 3 MILLIGRAM
     Route: 048
     Dates: start: 20180908
  3. OMEPRAZOLE. [Concomitant]
     Active Substance: OMEPRAZOLE
     Dosage: UNK
     Route: 065
  4. VITAMIN C [Concomitant]
     Active Substance: ASCORBIC ACID
     Dosage: UNK
     Route: 065
  5. ATIVAN [Concomitant]
     Active Substance: LORAZEPAM
     Dosage: UNK
     Route: 065
  6. LORAZEPAM. [Concomitant]
     Active Substance: LORAZEPAM
     Dosage: UNK
     Route: 065
  7. AMBIEN [Concomitant]
     Active Substance: ZOLPIDEM TARTRATE
     Dosage: UNK
     Route: 065
  8. ZOLPIDEM [Concomitant]
     Active Substance: ZOLPIDEM TARTRATE
     Dosage: UNK
     Route: 065
  9. MELATONIN [Concomitant]
     Active Substance: MELATONIN
     Dosage: UNK
     Route: 065
  10. ZYRTEC [Concomitant]
     Active Substance: CETIRIZINE HYDROCHLORIDE
     Dosage: UNK
     Route: 065
  11. REVLIMID [Concomitant]
     Active Substance: LENALIDOMIDE
     Dosage: UNK
     Route: 065
  12. ASPIRIN (E.C.) [Concomitant]
     Active Substance: ASPIRIN
     Dosage: UNK
     Route: 065
  13. POMALYST [Suspect]
     Active Substance: POMALIDOMIDE
     Indication: PLASMA CELL MYELOMA
     Dosage: UNK
     Route: 065

REACTIONS (5)
  - Nasopharyngitis [Unknown]
  - Gastroenteritis viral [Unknown]
  - Nausea [Unknown]
  - Blood test abnormal [Unknown]
  - Off label use [Unknown]

NARRATIVE: CASE EVENT DATE: 201903
